FAERS Safety Report 20384131 (Version 2)
Quarter: 2022Q1

REPORT INFORMATION
  Report Type: Report from Study
  Country: CN (occurrence: CN)
  Receive Date: 20220127
  Receipt Date: 20220129
  Transmission Date: 20220423
  Serious: Yes (Death, Hospitalization, Other)
  Sender: FDA-Public Use
  Company Number: CN-NOVARTISPH-NVSC2022CN005219

PATIENT
  Age: 73 Year
  Sex: Male
  Weight: 70 kg

DRUGS (4)
  1. ENTRESTO [Suspect]
     Active Substance: SACUBITRIL\VALSARTAN
     Indication: Cardiac failure chronic
     Dosage: 25 MG, BID
     Route: 065
     Dates: start: 20200527
  2. FUROSEMIDE [Concomitant]
     Active Substance: FUROSEMIDE
     Indication: Pre-existing disease
     Dosage: 20 MG
     Route: 065
     Dates: start: 20200904
  3. METOPROLOL [Concomitant]
     Active Substance: METOPROLOL
     Indication: Pre-existing disease
     Dosage: 12.5 MG
     Route: 065
     Dates: start: 20200904
  4. SPIRONOLACTONE [Concomitant]
     Active Substance: SPIRONOLACTONE
     Indication: Pre-existing disease
     Dosage: 20 MG
     Route: 065
     Dates: start: 20200904

REACTIONS (7)
  - Cardiac disorder [Fatal]
  - Tachypnoea [Fatal]
  - Condition aggravated [Fatal]
  - Ischaemic cardiomyopathy [Recovering/Resolving]
  - White blood cells urine positive [Unknown]
  - Red blood cells urine positive [Unknown]
  - Coronary artery disease [Recovering/Resolving]

NARRATIVE: CASE EVENT DATE: 20200825
